FAERS Safety Report 9692721 (Version 1)
Quarter: 2013Q4

REPORT INFORMATION
  Report Type: Spontaneous
  Country: US (occurrence: US)
  Receive Date: 20131118
  Receipt Date: 20131118
  Transmission Date: 20140711
  Serious: Yes (Other)
  Sender: FDA-Public Use
  Company Number: US-009507513-1311USA005241

PATIENT
  Sex: 0

DRUGS (1)
  1. FOSAMAX [Suspect]
     Dosage: UNK

REACTIONS (11)
  - Cardiac pacemaker insertion [Unknown]
  - Cardiac pacemaker replacement [Unknown]
  - Viral infection [Unknown]
  - Cardiomyopathy [Unknown]
  - Cardiac failure congestive [Unknown]
  - Sleep apnoea syndrome [Unknown]
  - Continuous positive airway pressure [Unknown]
  - Cardiac monitoring [Unknown]
  - Weight increased [Unknown]
  - Localised oedema [Unknown]
  - Oesophageal mass [Unknown]
